FAERS Safety Report 9927827 (Version 2)
Quarter: 2015Q1

REPORT INFORMATION
  Report Type: Spontaneous
  Country: HR (occurrence: HR)
  Receive Date: 20140227
  Receipt Date: 20140227
  Transmission Date: 20150721
  Serious: Yes (Death)
  Sender: FDA-Public Use
  Company Number: HR-ASTRAZENECA-2014SE12857

PATIENT
  Age: 51 Year
  Sex: Female

DRUGS (9)
  1. SYMBICORT [Suspect]
     Active Substance: BUDESONIDE\FORMOTEROL FUMARATE DIHYDRATE
     Indication: ASTHMA
     Dosage: 1 DF= 320MCG BUDESONIDE + 9 MCG FORMOTEROL, TWO DOSAGE FORM TWO TIMES DAILY
     Route: 055
     Dates: start: 201302, end: 20130826
  2. FLAVAMED (AMBROXOL) [Suspect]
     Active Substance: AMBROXOL
     Indication: ASTHMA
     Route: 048
     Dates: end: 20130826
  3. FLAVAMED (AMBROXOL) [Suspect]
     Active Substance: AMBROXOL
     Indication: CHRONIC OBSTRUCTIVE PULMONARY DISEASE
     Route: 048
     Dates: end: 20130826
  4. SYMBICORT [Suspect]
     Active Substance: BUDESONIDE\FORMOTEROL FUMARATE DIHYDRATE
     Indication: CHRONIC OBSTRUCTIVE PULMONARY DISEASE
     Dosage: 1 DF= 320MCG BUDESONIDE + 9 MCG FORMOTEROL, TWO DOSAGE FORM TWO TIMES DAILY
     Route: 055
     Dates: start: 201302, end: 20130826
  5. MONTELUKAST [Suspect]
     Active Substance: MONTELUKAST SODIUM
     Indication: ASTHMA
     Route: 048
     Dates: start: 201209, end: 20130826
  6. MONTELUKAST [Suspect]
     Active Substance: MONTELUKAST SODIUM
     Indication: CHRONIC OBSTRUCTIVE PULMONARY DISEASE
     Route: 048
     Dates: start: 201209, end: 20130826
  7. VENTOLIN [Suspect]
     Active Substance: ALBUTEROL SULFATE
     Indication: ASTHMA
     Dosage: AS REQUIRED
     Route: 055
     Dates: start: 201302, end: 20130826
  8. ATROVENT [Suspect]
     Active Substance: IPRATROPIUM BROMIDE
     Indication: ASTHMA
     Route: 055
     Dates: start: 201307, end: 20130826
  9. VENTOLIN [Suspect]
     Active Substance: ALBUTEROL SULFATE
     Indication: CHRONIC OBSTRUCTIVE PULMONARY DISEASE
     Dosage: AS REQUIRED
     Route: 055
     Dates: start: 201302, end: 20130826

REACTIONS (1)
  - Death [Fatal]

NARRATIVE: CASE EVENT DATE: 20130826
